FAERS Safety Report 6885980-7 (Version None)
Quarter: 2010Q3

REPORT INFORMATION
  Report Type: 
  Country: None (occurrence: None)
  Receive Date: 20100729
  Receipt Date: 20090204
  Transmission Date: 20110219
  Serious: No
  Sender: FDA-Public Use
  Company Number: US-PFIZER INC-2008150845

PATIENT
  Sex: Female
  Weight: 86.2 kg

DRUGS (5)
  1. CELEBREX [Suspect]
     Indication: ARTHRITIS
     Dosage: 200 MG, UNK
     Dates: start: 20080101
  2. CELEBREX [Suspect]
     Indication: JOINT INJURY
  3. CELEBREX [Suspect]
     Indication: FIBROMYALGIA
  4. LYRICA [Concomitant]
     Indication: PAIN
     Dosage: UNK
  5. ULTRAM [Concomitant]
     Indication: PAIN
     Dosage: UNK

REACTIONS (1)
  - DRUG INEFFECTIVE [None]
